FAERS Safety Report 8233456-7 (Version None)
Quarter: 2012Q1

REPORT INFORMATION
  Report Type: 
  Country: None (occurrence: None)
  Receive Date: 20120326
  Receipt Date: 20120319
  Transmission Date: 20120608
  Serious: Yes (Hospitalization, Other)
  Sender: FDA-Public Use
  Company Number: US-AMGEN-USASP2012017549

PATIENT
  Age: 12 Year
  Sex: Female

DRUGS (5)
  1. EPOGEN [Suspect]
     Dosage: 5000 IU, 3 TIMES/WK
     Route: 058
     Dates: start: 20120301
  2. EPOGEN [Suspect]
     Indication: PERITONEAL DIALYSIS
     Dosage: 5000 UNK, UNK
     Dates: start: 20110901, end: 20110930
  3. EPOGEN [Suspect]
     Dosage: 3000 IU, 3 TIMES/WK
     Dates: start: 20120119, end: 20120216
  4. EPOGEN [Suspect]
     Dosage: 3000 IU, 2 TIMES/WK
     Dates: start: 20111001, end: 20111201
  5. EPOGEN [Suspect]
     Dosage: 5000 IU, 2 TIMES/WK
     Dates: start: 20120217, end: 20120229

REACTIONS (2)
  - HAEMOGLOBIN DECREASED [None]
  - DRUG INEFFECTIVE [None]
